FAERS Safety Report 6986118-8 (Version None)
Quarter: 2010Q3

REPORT INFORMATION
  Report Type: 
  Country: None (occurrence: None)
  Receive Date: 20100915
  Receipt Date: 20100830
  Transmission Date: 20110219
  Serious: Yes (Hospitalization, Other)
  Sender: FDA-Public Use
  Company Number: DE-GENENTECH-305754

PATIENT
  Sex: Male
  Weight: 68 kg

DRUGS (7)
  1. RITUXIMAB [Suspect]
     Indication: NON-HODGKIN'S LYMPHOMA
     Dosage: 700 MG/M2, UNK
     Route: 042
     Dates: start: 20090727
  2. BENDAMUSTINE [Suspect]
     Indication: NON-HODGKIN'S LYMPHOMA
     Dosage: UNK
     Route: 042
     Dates: start: 20090727
  3. BUDENOFALK [Concomitant]
     Indication: CROHN'S DISEASE
     Dosage: 3 MG, UNK
     Route: 048
  4. BUDENOFALK [Concomitant]
     Route: 048
  5. COLESTYRAMIN [Concomitant]
     Indication: DIARRHOEA
     Dosage: 1 DF, UNK
     Route: 048
  6. MESALAMINE [Concomitant]
     Indication: PRODUCT USED FOR UNKNOWN INDICATION
     Dosage: UNK
  7. LEVOTHYROXINE SODIUM [Concomitant]
     Indication: THYROID OPERATION
     Dosage: 1 DF, 1/WEEK
     Route: 048

REACTIONS (2)
  - CROHN'S DISEASE [None]
  - DIARRHOEA [None]
